FAERS Safety Report 10249095 (Version 1)
Quarter: 2014Q2

REPORT INFORMATION
  Report Type: Spontaneous
  Country: US (occurrence: US)
  Receive Date: 20140620
  Receipt Date: 20140620
  Transmission Date: 20141212
  Serious: Yes (Hospitalization)
  Sender: FDA-Public Use
  Company Number: US-BAYER-2014-091752

PATIENT
  Age: 28 Year
  Sex: Female
  Weight: 87.98 kg

DRUGS (3)
  1. YAZ [Suspect]
  2. ZITHROMAX [Concomitant]
  3. PERCOCET [Concomitant]

REACTIONS (2)
  - Pulmonary embolism [None]
  - Deep vein thrombosis [None]
